FAERS Safety Report 9008505 (Version 1)
Quarter: 2013Q1

REPORT INFORMATION
  Report Type: Spontaneous
  Country: IT (occurrence: IT)
  Receive Date: 20130111
  Receipt Date: 20130111
  Transmission Date: 20140127
  Serious: Yes (Other)
  Sender: FDA-Public Use
  Company Number: IT-PFIZER INC-2013000723

PATIENT
  Age: 76 Year
  Sex: Female

DRUGS (6)
  1. CISPLATIN [Suspect]
     Indication: BREAST CANCER STAGE IV
     Dosage: 50 MG (0.5 MG/ML,CYCLICAL)
     Route: 042
     Dates: start: 20091106, end: 20121220
  2. PACLITAXEL [Suspect]
     Indication: BREAST CANCER STAGE IV
     Dosage: 113 MG (6 MG/ML,CYCLICAL)
     Route: 042
     Dates: start: 20121220, end: 20121220
  3. FARMORUBICINA [Concomitant]
     Indication: BREAST CANCER STAGE IV
     Dosage: 53 MG (2 MG/ML)
     Route: 042
  4. ZANTAC [Concomitant]
     Indication: BREAST CANCER STAGE IV
     Dosage: 1 DOSAGE FORMS (10 MG/ML)
     Route: 042
  5. KYTRIL [Concomitant]
     Indication: BREAST CANCER STAGE IV
     Dosage: 1 DOSAGE FORMS (1 MG/ML)
     Route: 042
  6. DECADRON [Concomitant]
     Indication: BREAST CANCER STAGE IV
     Dosage: 4 MG (4 MG/ML)
     Route: 042

REACTIONS (2)
  - Vomiting [Recovered/Resolved]
  - Tremor [Recovered/Resolved]
